FAERS Safety Report 11915464 (Version 1)
Quarter: 2016Q1

REPORT INFORMATION
  Report Type: Spontaneous
  Country: PH (occurrence: PH)
  Receive Date: 20160114
  Receipt Date: 20160114
  Transmission Date: 20160526
  Serious: Yes (Death)
  Sender: FDA-Public Use
  Company Number: PH-009507513-1601PHL002035

PATIENT
  Age: 85 Year
  Sex: Male

DRUGS (1)
  1. COZAAR [Suspect]
     Active Substance: LOSARTAN POTASSIUM
     Indication: HYPERTENSION
     Dosage: 1 TABLET, ONCE A DAY
     Route: 048
     Dates: start: 20150130

REACTIONS (2)
  - Adverse event [Fatal]
  - Diabetic complication [Fatal]

NARRATIVE: CASE EVENT DATE: 20151224
